FAERS Safety Report 18002299 (Version 4)
Quarter: 2020Q4

REPORT INFORMATION
  Report Type: Report from Study
  Country: US (occurrence: US)
  Receive Date: 20200709
  Receipt Date: 20201221
  Transmission Date: 20210113
  Serious: Yes (Other)
  Sender: FDA-Public Use
  Company Number: NVSC2020US184998

PATIENT
  Age: 53 Year
  Sex: Male

DRUGS (3)
  1. KYMRIAH [Suspect]
     Active Substance: TISAGENLECLEUCEL
     Indication: BURKITT^S LYMPHOMA
     Dosage: UNK, ONCE/SINGLE
     Route: 042
     Dates: start: 20191028
  2. FLUDARABINE [Concomitant]
     Active Substance: FLUDARABINE PHOSPHATE
     Indication: CHEMOTHERAPY
     Route: 065
  3. CYCLOPHOSPHAMIDE. [Concomitant]
     Active Substance: CYCLOPHOSPHAMIDE
     Indication: CHEMOTHERAPY
     Route: 065

REACTIONS (15)
  - Platelet count decreased [Not Recovered/Not Resolved]
  - Cytokine release syndrome [Not Recovered/Not Resolved]
  - Malignant neoplasm progression [Unknown]
  - Neutropenia [Unknown]
  - Cytopenia [Unknown]
  - Aphasia [Unknown]
  - Product use in unapproved indication [Unknown]
  - Neurotoxicity [Unknown]
  - Pyrexia [Unknown]
  - Burkitt^s lymphoma [Unknown]
  - Tremor [Unknown]
  - White blood cell count decreased [Unknown]
  - Treatment failure [Unknown]
  - Lymphocyte count decreased [Unknown]
  - Thrombocytopenia [Unknown]
